FAERS Safety Report 18605326 (Version 1)
Quarter: 2020Q4

REPORT INFORMATION
  Report Type: Spontaneous
  Country: US (occurrence: US)
  Receive Date: 20201211
  Receipt Date: 20201211
  Transmission Date: 20210114
  Serious: No
  Sender: FDA-Public Use
  Company Number: US-ASTRAZENECA-2020SF58987

PATIENT
  Age: 801 Month
  Sex: Female
  Weight: 59 kg

DRUGS (2)
  1. SYMBICORT [Suspect]
     Active Substance: BUDESONIDE\FORMOTEROL FUMARATE DIHYDRATE
     Indication: CHRONIC OBSTRUCTIVE PULMONARY DISEASE
     Dosage: 160/4.5 MCG, INHALATION, 2 PUFFS, TWICE DAILY
     Route: 055
  2. BREZTRI [Suspect]
     Active Substance: BUDESONIDE\FORMOTEROL\GLYCOPYRRONIUM
     Indication: CHRONIC OBSTRUCTIVE PULMONARY DISEASE
     Dosage: 160 MCG/9 MCG/4.8 MCG, INHALATION, 2 PUFFS, TWICE DAILY
     Route: 055
     Dates: start: 20201003, end: 202011

REACTIONS (4)
  - Dyspnoea [Not Recovered/Not Resolved]
  - Bronchospasm [Unknown]
  - Intentional product misuse [Unknown]
  - Cough [Unknown]

NARRATIVE: CASE EVENT DATE: 202010
